FAERS Safety Report 21283287 (Version 1)
Quarter: 2022Q3

REPORT INFORMATION
  Report Type: Spontaneous
  Country: US (occurrence: None)
  Receive Date: 20220901
  Receipt Date: 20220901
  Transmission Date: 20221027
  Serious: No
  Sender: FDA-Public Use
  Company Number: None

PATIENT

DRUGS (2)
  1. LOVENOX [Suspect]
     Active Substance: ENOXAPARIN SODIUM
     Route: 058
  2. FRAGMIN [Suspect]
     Active Substance: DALTEPARIN SODIUM

REACTIONS (6)
  - Exposure during pregnancy [None]
  - Pruritus [None]
  - Rash [None]
  - Product dispensing error [None]
  - Incorrect dose administered [None]
  - Anticoagulation drug level above therapeutic [None]
